FAERS Safety Report 5851668-4 (Version None)
Quarter: 2008Q3

REPORT INFORMATION
  Report Type: 
  Country: None (occurrence: None)
  Receive Date: 20080820
  Receipt Date: 20080812
  Transmission Date: 20090109
  Serious: Yes (Other)
  Sender: FDA-Public Use
  Company Number: US-ASTRAZENECA-2008UW16435

PATIENT
  Age: 62 Year
  Sex: Female
  Weight: 54.4 kg

DRUGS (4)
  1. ARIMIDEX [Suspect]
     Indication: BREAST CANCER
     Route: 048
     Dates: start: 20031210
  2. ARIMIDEX [Suspect]
     Route: 048
  3. IMITREX [Concomitant]
  4. TOPAMAX [Concomitant]

REACTIONS (4)
  - ARTHRALGIA [None]
  - FASCIITIS [None]
  - JOINT SPRAIN [None]
  - OSTEOPENIA [None]
